FAERS Safety Report 10925973 (Version 1)
Quarter: 2015Q1

REPORT INFORMATION
  Report Type: Not Available
  Country: ES (occurrence: ES)
  Receive Date: 20150318
  Receipt Date: 20150318
  Transmission Date: 20150721
  Serious: Yes (Other)
  Sender: FDA-Public Use
  Company Number: ES-MUNDIPHARMA DS AND PHARMACOVIGILANCE-GBR-2015-0026272

PATIENT
  Age: 61 Year
  Sex: Female

DRUGS (2)
  1. EXXIV [Suspect]
     Active Substance: ETORICOXIB
     Indication: BACK PAIN
     Dosage: 60 MG, DAILY (1 TABLET, DAILY)
     Route: 048
     Dates: start: 20150212, end: 20150225
  2. TARGIN 5MG/2.5MG COMPRIMIDOS DE LIBERACION PROLONGADA [Suspect]
     Active Substance: NALOXONE HYDROCHLORIDE\OXYCODONE HYDROCHLORIDE
     Indication: BACK PAIN
     Dosage: 5 MG/ 2.5 MG, 1 TABLET, Q12H
     Route: 048
     Dates: start: 20150212, end: 20150225

REACTIONS (1)
  - Cardiac failure [Recovering/Resolving]

NARRATIVE: CASE EVENT DATE: 20150219
